FAERS Safety Report 10245099 (Version 1)
Quarter: 2014Q2

REPORT INFORMATION
  Report Type: Spontaneous
  Country: FR (occurrence: FR)
  Receive Date: 20140618
  Receipt Date: 20140618
  Transmission Date: 20141212
  Serious: Yes (Hospitalization)
  Sender: FDA-Public Use
  Company Number: FR-ELI_LILLY_AND_COMPANY-FR201406003210

PATIENT
  Age: 77 Year
  Sex: Male

DRUGS (22)
  1. ALIMTA [Suspect]
     Indication: LUNG ADENOCARCINOMA
     Dosage: UNK
     Route: 065
     Dates: start: 20140311
  2. ALIMTA [Suspect]
     Dosage: UNK
     Route: 065
     Dates: start: 20140312
  3. ALIMTA [Suspect]
     Dosage: UNK
     Route: 065
     Dates: start: 20140313
  4. CISPLATINE [Suspect]
     Indication: LUNG ADENOCARCINOMA
     Dosage: UNK
     Route: 065
     Dates: start: 20140311
  5. CISPLATINE [Suspect]
     Dosage: UNK
     Route: 065
     Dates: start: 20140312
  6. CISPLATINE [Suspect]
     Dosage: UNK
     Route: 065
     Dates: start: 20140313
  7. INEXIUM                            /01479302/ [Concomitant]
     Dosage: 40 MG, QD
  8. XATRAL [Concomitant]
     Dosage: 10 MG, QD
  9. VITAMIN B1 [Concomitant]
     Route: 048
  10. VITAMIN B6 [Concomitant]
     Route: 048
  11. VITAMIN C                          /00008001/ [Concomitant]
     Dosage: 1 DF, QD
     Route: 048
  12. UVEDOSE [Concomitant]
     Dosage: 1 DF, MONTHLY (1/M)
     Route: 048
  13. CARDENSIEL [Concomitant]
     Dosage: 1.25 MG, QD
     Route: 048
  14. MAGNE B6                           /00869101/ [Concomitant]
     Dosage: 2 DF, OTHER
     Route: 048
  15. NAFTIDROFURYL OXALATE [Concomitant]
     Dosage: 200 MG, QD
  16. INEGY [Concomitant]
     Dosage: 1 DF, QD
  17. KARDEGIC [Concomitant]
     Dosage: 75 MG, QD
  18. FOZITEC                            /00915301/ [Concomitant]
     Dosage: 10 MG, QD
  19. BISOPROLOL [Concomitant]
     Dosage: 2.5 MG, QD
  20. FUROSEMIDE [Concomitant]
     Dosage: 1 DF, QD
  21. NEOMERCAZOLE [Concomitant]
     Dosage: 2.5 MG, QD
  22. KETODERM                           /00532501/ [Concomitant]

REACTIONS (9)
  - Renal failure acute [Recovered/Resolved]
  - Inflammation [Unknown]
  - Dehydration [Recovered/Resolved]
  - Diarrhoea [Recovered/Resolved]
  - Hypotension [Unknown]
  - General physical health deterioration [Unknown]
  - Hyperthermia [Unknown]
  - Decreased appetite [Unknown]
  - Confusional state [Unknown]
